FAERS Safety Report 8578273-3 (Version None)
Quarter: 2012Q3

REPORT INFORMATION
  Report Type: 
  Country: None (occurrence: None)
  Receive Date: 20120726
  Receipt Date: 20120712
  Transmission Date: 20120928
  Serious: Yes (Hospitalization)
  Sender: FDA-Public Use
  Company Number: JPI-P-019819

PATIENT
  Age: 53 Year
  Sex: Female
  Weight: 58.0604 kg

DRUGS (2)
  1. XYREM [Suspect]
     Indication: HYPERSOMNIA
     Dosage: 4.5 GM (2.5 GM, 2 IN 1 D), ORAL, 9 GM (4.5 GM, 2 IN 1 D), ORAL, (4.5 GM/4 GM), ORAL
     Route: 048
     Dates: end: 20080608
  2. XYREM [Suspect]
     Indication: HYPERSOMNIA
     Dosage: 4.5 GM (2.5 GM, 2 IN 1 D), ORAL, 9 GM (4.5 GM, 2 IN 1 D), ORAL, (4.5 GM/4 GM), ORAL
     Route: 048
     Dates: start: 20070222

REACTIONS (15)
  - MUSCULAR WEAKNESS [None]
  - ACTIVITIES OF DAILY LIVING IMPAIRED [None]
  - SINUSITIS [None]
  - NERVOUSNESS [None]
  - ATRIAL FIBRILLATION [None]
  - INITIAL INSOMNIA [None]
  - HYPERHIDROSIS [None]
  - INSOMNIA [None]
  - SOMNOLENCE [None]
  - PALPITATIONS [None]
  - LARYNGITIS [None]
  - NASAL CONGESTION [None]
  - TREMOR [None]
  - ANXIETY [None]
  - MUSCLE SPASMS [None]
